FAERS Safety Report 20650386 (Version 3)
Quarter: 2024Q1

REPORT INFORMATION
  Report Type: Spontaneous
  Country: US (occurrence: US)
  Receive Date: 20220329
  Receipt Date: 20240116
  Transmission Date: 20240410
  Serious: No
  Sender: FDA-Public Use
  Company Number: US-SA-SAC20220325000588

PATIENT
  Age: 49 Year
  Sex: Male
  Weight: 74.376 kg

DRUGS (2)
  1. FABRAZYME [Suspect]
     Active Substance: AGALSIDASE BETA
     Indication: Fabry^s disease
     Dosage: 75 MG, QOW
     Route: 042
     Dates: start: 20120224, end: 20220309
  2. FABRAZYME [Suspect]
     Active Substance: AGALSIDASE BETA
     Dosage: 75 MG, QOW
     Route: 042
     Dates: start: 202203

REACTIONS (4)
  - Illness [Unknown]
  - Weight increased [Unknown]
  - Burning sensation [Unknown]
  - Condition aggravated [Unknown]

NARRATIVE: CASE EVENT DATE: 20220301
